FAERS Safety Report 9290044 (Version 1)
Quarter: 2013Q2

REPORT INFORMATION
  Report Type: Spontaneous
  Country: GB (occurrence: None)
  Receive Date: 20130510
  Receipt Date: 20130510
  Transmission Date: 20140414
  Serious: Yes (Life-Threatening, Hospitalization, Other)
  Sender: FDA-Public Use
  Company Number: E2B_0000802

PATIENT
  Age: 64 Year
  Sex: Male
  Weight: 83 kg

DRUGS (7)
  1. SIMVASTATIN [Suspect]
     Indication: PRODUCT USED FOR UNKNOWN INDICATION
     Route: 048
     Dates: start: 20030423, end: 20121126
  2. AMLODIPINE (UNKNOWN) [Concomitant]
  3. ACETYLSALICYLIC ACID (ASPIRIN) (UNKNOWN) [Concomitant]
  4. RAMIPRIL (UNKNOWN) (RAMIPRIL) [Concomitant]
  5. ATENOLOL (UNKNOWN) [Concomitant]
  6. BISOPROLOL (UNKNOWN) [Concomitant]
  7. ATORVASTATIN (UNKNOWN) [Concomitant]

REACTIONS (2)
  - Myocardial infarction [None]
  - Atrial fibrillation [None]
